FAERS Safety Report 8136938-1 (Version None)
Quarter: 2012Q1

REPORT INFORMATION
  Report Type: 
  Country: None (occurrence: None)
  Receive Date: 20120214
  Receipt Date: 20120210
  Transmission Date: 20120608
  Serious: Yes (Other)
  Sender: FDA-Public Use
  Company Number: BR-MERCK-1202BRA00044

PATIENT
  Sex: Female
  Weight: 11 kg

DRUGS (1)
  1. SINGULAIR [Suspect]
     Indication: PULMONARY MALFORMATION
     Route: 048
     Dates: start: 20101101

REACTIONS (3)
  - CARDIAC OPERATION [None]
  - OFF LABEL USE [None]
  - DRUG ADMINISTRATION ERROR [None]
